FAERS Safety Report 6874549-6 (Version None)
Quarter: 2010Q3

REPORT INFORMATION
  Report Type: 
  Country: None (occurrence: None)
  Receive Date: 20100722
  Receipt Date: 20100712
  Transmission Date: 20110219
  Serious: Yes (Hospitalization)
  Sender: FDA-Public Use
  Company Number: CIP10001631

PATIENT
  Age: 86 Year
  Sex: Female

DRUGS (9)
  1. ACTONEL [Suspect]
     Dosage: 35 MG, ORAL
     Route: 048
     Dates: start: 20080701
  2. PANTOPRAZOLE SODIUM [Concomitant]
  3. PRAVACHOL [Concomitant]
  4. ENDEP [Concomitant]
  5. FISH OIL (FISH OIL) [Concomitant]
  6. METHOTREXATE [Concomitant]
  7. VITAMIN B-12 [Concomitant]
  8. CALCIUM (CALCIUM) [Concomitant]
  9. ERGOCALCIFEROL [Concomitant]

REACTIONS (4)
  - FOOT FRACTURE [None]
  - LOWER LIMB FRACTURE [None]
  - PATHOLOGICAL FRACTURE [None]
  - TREATMENT NONCOMPLIANCE [None]
